FAERS Safety Report 7400786-8 (Version None)
Quarter: 2011Q2

REPORT INFORMATION
  Report Type: 
  Country: None (occurrence: None)
  Receive Date: 20110407
  Receipt Date: 20110401
  Transmission Date: 20111010
  Serious: Yes (Other)
  Sender: FDA-Public Use
  Company Number: B0710086A

PATIENT
  Age: 44 Year
  Sex: Female
  Weight: 90 kg

DRUGS (3)
  1. HERCEPTIN [Concomitant]
     Dates: start: 20090801
  2. LAPATINIB [Suspect]
     Indication: BREAST CANCER METASTATIC
     Route: 048
     Dates: start: 20110228, end: 20110312
  3. CAPECITABINE [Concomitant]
     Dates: start: 20110101

REACTIONS (4)
  - ANAEMIA [None]
  - HYPERBILIRUBINAEMIA [None]
  - ABNORMAL CLOTTING FACTOR [None]
  - HYPOKALAEMIA [None]
